FAERS Safety Report 10266004 (Version 1)
Quarter: 2014Q2

REPORT INFORMATION
  Report Type: Report from Study
  Country: AU (occurrence: AU)
  Receive Date: 20140627
  Receipt Date: 20140627
  Transmission Date: 20141212
  Serious: Yes (Life-Threatening, Hospitalization, Other)
  Sender: FDA-Public Use
  Company Number: AU-ASTRAZENECA-2014SE46227

PATIENT
  Age: 0 Day
  Sex: Male
  Weight: 5.1 kg

DRUGS (6)
  1. SEROQUEL XR [Suspect]
     Indication: PSYCHOTIC DISORDER
     Dosage: STARTED PRE-PREGNANCY AND STOPPED AT 14/40 WKS
     Route: 064
  2. LAMOTRIGENE [Concomitant]
     Indication: MOOD ALTERED
     Dosage: INITIATED PRE-PREGNANCY
     Route: 064
  3. BLACKMORES PBF FORMULA [Concomitant]
     Indication: VITAMIN SUPPLEMENTATION
     Dosage: INITIATED AT FIRST TRIMESTER
     Route: 064
  4. VITAMIN D/CALCIUM [Concomitant]
     Indication: VITAMIN SUPPLEMENTATION
     Dosage: INITIATED AT FIRST TRIMESTER
     Route: 064
  5. FERROGRAD + C [Concomitant]
     Indication: MINERAL SUPPLEMENTATION
     Dosage: INITIATED AT FIRST TRIMESTER
     Route: 064
  6. MEGAFOL [Concomitant]
     Indication: VITAMIN SUPPLEMENTATION
     Dosage: INITIATED AT FIRST TRIMESTER
     Route: 064

REACTIONS (1)
  - Respiratory distress [Recovered/Resolved]
